FAERS Safety Report 12902553 (Version 2)
Quarter: 2016Q4

REPORT INFORMATION
  Report Type: Spontaneous
  Country: US (occurrence: US)
  Receive Date: 20161102
  Receipt Date: 20161104
  Transmission Date: 20170207
  Serious: Yes (Other)
  Sender: FDA-Public Use
  Company Number: US-BAYER-2016-204311

PATIENT
  Age: 79 Year
  Sex: Female
  Weight: 50.79 kg

DRUGS (2)
  1. PHILLIPS^ LAXATIVE DIETARY SUPPLEMENT [Suspect]
     Active Substance: MAGNESIUM OXIDE
     Indication: ANTACID THERAPY
     Dosage: UNK
  2. BAYER GENUINE ASPIRIN [Suspect]
     Active Substance: ASPIRIN
     Indication: PAIN
     Dosage: 1 DF, QD
     Route: 048
     Dates: end: 20161021

REACTIONS (3)
  - Product use issue [None]
  - Drug dependence [Unknown]
  - Product use issue [Unknown]
